FAERS Safety Report 7167885-X (Version None)
Quarter: 2010Q4

REPORT INFORMATION
  Report Type: 
  Country: None (occurrence: None)
  Receive Date: 20101202
  Receipt Date: 20101118
  Transmission Date: 20110411
  Serious: Yes (Other)
  Sender: FDA-Public Use
  Company Number: AUR-APL-2010-02941

PATIENT
  Sex: Female

DRUGS (11)
  1. ATENOLOL [Suspect]
     Indication: HYPERTENSION
  2. LISINOPRIL [Suspect]
  3. ABILIFY [Concomitant]
  4. LOSARTAS HT [Concomitant]
  5. SEROQUEL [Concomitant]
  6. CARBAMAZEPINE [Concomitant]
  7. GABAPENTIN [Concomitant]
  8. DICHLORALPHENAZONE/ISOMETHEPTENE MUCATE/PARACETAMOL [Concomitant]
  9. LAMOTRIGINE [Concomitant]
  10. PRAMIPEXOLE [Concomitant]
  11. SIMVASTATIN [Concomitant]

REACTIONS (3)
  - COMA [None]
  - COUGH [None]
  - DRUG HYPERSENSITIVITY [None]
